FAERS Safety Report 15546523 (Version 1)
Quarter: 2018Q4

REPORT INFORMATION
  Report Type: Spontaneous
  Country: US (occurrence: US)
  Receive Date: 20181024
  Receipt Date: 20181024
  Transmission Date: 20190205
  Serious: No
  Sender: FDA-Public Use
  Company Number: US-PURDUE-USA-2018-0144973

PATIENT
  Sex: Male

DRUGS (4)
  1. OXYCODONE HYDROCHLORIDE. [Suspect]
     Active Substance: OXYCODONE HYDROCHLORIDE
     Dosage: 10 MG, Q6- 8H
     Route: 048
     Dates: start: 201711
  2. OXYCODONE HYDROCHLORIDE. [Suspect]
     Active Substance: OXYCODONE HYDROCHLORIDE
     Dosage: 10 MG, Q4- 6H
     Route: 048
     Dates: start: 2015, end: 201711
  3. OXYCODONE HYDROCHLORIDE. [Suspect]
     Active Substance: OXYCODONE HYDROCHLORIDE
     Indication: PAIN
     Dosage: 5 MG, Q6H
     Route: 048
     Dates: start: 2008, end: 201008
  4. OXYCODONE HYDROCHLORIDE. [Suspect]
     Active Substance: OXYCODONE HYDROCHLORIDE
     Dosage: 2 X 5 MG, Q4- 6H
     Route: 048
     Dates: start: 201008, end: 2015

REACTIONS (2)
  - Pain [Not Recovered/Not Resolved]
  - Drug ineffective [Not Recovered/Not Resolved]

NARRATIVE: CASE EVENT DATE: 2010
